FAERS Safety Report 7932039-3 (Version None)
Quarter: 2011Q4

REPORT INFORMATION
  Report Type: 
  Country: None (occurrence: None)
  Receive Date: 20111121
  Receipt Date: 20110902
  Transmission Date: 20120403
  Serious: No
  Sender: FDA-Public Use
  Company Number: US-BAYER-2011-087790

PATIENT
  Age: 62 Year
  Sex: Male
  Weight: 82 kg

DRUGS (5)
  1. ALEVE (CAPLET) [Suspect]
     Indication: TOOTHACHE
     Dosage: 1 DF, BID
     Route: 048
     Dates: start: 20110831
  2. SYNTHROID [Concomitant]
  3. LISINOPRIL [Concomitant]
  4. LESCOL [Concomitant]
  5. NORTRIPTYLINE HCL [Concomitant]

REACTIONS (1)
  - EYE PRURITUS [None]
